FAERS Safety Report 10416578 (Version 1)
Quarter: 2014Q3

REPORT INFORMATION
  Report Type: Report from Study
  Country: US (occurrence: US)
  Receive Date: 20140828
  Receipt Date: 20140828
  Transmission Date: 20150326
  Serious: Yes (Hospitalization, Other)
  Sender: FDA-Public Use
  Company Number: PHHY2014US103852

PATIENT
  Age: 72 Year
  Sex: Male
  Weight: 88 kg

DRUGS (6)
  1. TACROLIMUS. [Suspect]
     Active Substance: TACROLIMUS
     Indication: RENAL TRANSPLANT
     Dosage: 1 MG, BID
     Route: 048
     Dates: start: 20130712, end: 20130923
  2. TACROLIMUS. [Suspect]
     Active Substance: TACROLIMUS
     Dosage: 1 MG, BID
     Route: 048
     Dates: start: 20130928, end: 20130930
  3. TACROLIMUS. [Suspect]
     Active Substance: TACROLIMUS
     Dosage: 1 MG, BID
     Dates: start: 20130809
  4. BASILIXIMAB [Suspect]
     Active Substance: BASILIXIMAB
     Indication: RENAL TRANSPLANT
     Dosage: 20 MG PER INFUSION
     Route: 042
     Dates: start: 20130711, end: 20130711
  5. BASILIXIMAB [Suspect]
     Active Substance: BASILIXIMAB
     Dosage: 20 MG PER INFUSION
     Route: 042
     Dates: start: 20130715, end: 20130715
  6. PREDNISONE. [Concomitant]
     Active Substance: PREDNISONE
     Dosage: UNK UKN, UNK

REACTIONS (47)
  - Lung infection [Recovered/Resolved]
  - Deep vein thrombosis [Recovered/Resolved]
  - Clostridium difficile colitis [Recovering/Resolving]
  - Diarrhoea [Unknown]
  - Encephalopathy [Unknown]
  - Left ventricular hypertrophy [Unknown]
  - Cerebral atrophy [Unknown]
  - Diastolic dysfunction [Unknown]
  - Central nervous system infection [Unknown]
  - Renal impairment [Unknown]
  - Colitis [Unknown]
  - Cholelithiasis [Unknown]
  - Blood pressure increased [Unknown]
  - Cerebral infarction [Unknown]
  - Central nervous system lesion [Unknown]
  - Cerebral haemorrhage [Unknown]
  - Pancytopenia [Unknown]
  - Toxic encephalopathy [Unknown]
  - Failure to thrive [Unknown]
  - Cardiomegaly [Unknown]
  - Localised intraabdominal fluid collection [Unknown]
  - Gastrointestinal haemorrhage [Unknown]
  - Chronic allograft nephropathy [Unknown]
  - Respiratory distress [Recovered/Resolved]
  - Aphasia [Unknown]
  - Ischaemia [Unknown]
  - White matter lesion [Unknown]
  - Metabolic encephalopathy [Unknown]
  - Hypokinesia [Unknown]
  - Sepsis [Unknown]
  - Prostatomegaly [Unknown]
  - Pneumonia pseudomonal [Unknown]
  - Dyspnoea [Unknown]
  - Cerebral small vessel ischaemic disease [Unknown]
  - Pelvic fluid collection [Unknown]
  - Atelectasis [Unknown]
  - Mental status changes [Unknown]
  - Pleural effusion [Unknown]
  - Urinary tract infection pseudomonal [Recovered/Resolved]
  - Disturbance in attention [Unknown]
  - Pneumothorax [Unknown]
  - Dehydration [Unknown]
  - Pyrexia [Unknown]
  - Unresponsive to stimuli [Unknown]
  - Renal tubular necrosis [Unknown]
  - Pneumonia klebsiella [Unknown]
  - Dyssomnia [Unknown]

NARRATIVE: CASE EVENT DATE: 201309
